FAERS Safety Report 15065192 (Version 1)
Quarter: 2018Q2

REPORT INFORMATION
  Report Type: Spontaneous
  Country: CA (occurrence: CA)
  Receive Date: 20180626
  Receipt Date: 20180626
  Transmission Date: 20180711
  Serious: Yes (Hospitalization)
  Sender: FDA-Public Use
  Company Number: CA-ROCHE-2143887

PATIENT
  Age: 59 Year
  Sex: Female
  Weight: 68.1 kg

DRUGS (1)
  1. AVASTIN [Suspect]
     Active Substance: BEVACIZUMAB
     Indication: NEOVASCULAR AGE-RELATED MACULAR DEGENERATION
     Route: 031

REACTIONS (8)
  - Syringe issue [Unknown]
  - Foreign body in eye [Recovering/Resolving]
  - Product contamination [Unknown]
  - Vitreous floaters [Recovering/Resolving]
  - New daily persistent headache [Recovering/Resolving]
  - Vitrectomy [Recovering/Resolving]
  - Loss of personal independence in daily activities [Recovering/Resolving]
  - Visual impairment [Recovering/Resolving]
